FAERS Safety Report 8823229 (Version 1)
Quarter: 2012Q4

REPORT INFORMATION
  Report Type: Report from Study
  Country: US (occurrence: US)
  Receive Date: 20121003
  Receipt Date: 20121003
  Transmission Date: 20130627
  Serious: Yes (Other)
  Sender: FDA-Public Use
  Company Number: US-ROCHE-1098500

PATIENT
  Age: 83 Year
  Sex: Female

DRUGS (2)
  1. MABTHERA [Suspect]
     Indication: LEUKOCYTOCLASTIC VASCULITIS
     Dosage: Most recent dose was on 15/Aug/2012
     Route: 042
     Dates: start: 20120730
  2. ALBUTEROL INHALER [Concomitant]
     Indication: ASTHMA

REACTIONS (11)
  - Cognitive disorder [Unknown]
  - Back pain [Unknown]
  - Pollakiuria [Unknown]
  - Fatigue [Unknown]
  - Dyspnoea [Unknown]
  - Back pain [Recovered/Resolved]
  - Arthralgia [Unknown]
  - Hypertension [Unknown]
  - Diarrhoea [Unknown]
  - Fatigue [Unknown]
  - Dyspnoea [Unknown]
